FAERS Safety Report 5908842-8 (Version None)
Quarter: 2008Q4

REPORT INFORMATION
  Report Type: 
  Country: None (occurrence: None)
  Receive Date: 20081006
  Receipt Date: 20080929
  Transmission Date: 20090506
  Serious: Yes (Other)
  Sender: FDA-Public Use
  Company Number: JP-AVENTIS-200713173JP

PATIENT
  Age: 30 Year
  Sex: Female
  Weight: 53 kg

DRUGS (3)
  1. INSULIN GLARGINE [Suspect]
     Dosage: DOSE: 14 UNITS
     Route: 058
     Dates: start: 20050101
  2. INSULIN GLARGINE [Suspect]
     Dosage: DOSE: 28UNITS(12-0-16-0)
     Route: 058
     Dates: start: 20050101, end: 20051201
  3. QUICK ACTING INSULIN [Concomitant]
     Dosage: FREQUENCY: BEFORE MEALS

REACTIONS (2)
  - ABORTION SPONTANEOUS [None]
  - DRUG EXPOSURE DURING PREGNANCY [None]
